FAERS Safety Report 5869483-4 (Version None)
Quarter: 2008Q3

REPORT INFORMATION
  Report Type: 
  Country: None (occurrence: None)
  Receive Date: 20080829
  Receipt Date: 20080819
  Transmission Date: 20090109
  Serious: Yes (Hospitalization)
  Sender: FDA-Public Use
  Company Number: 237875J08USA

PATIENT
  Age: 52 Year
  Sex: Male

DRUGS (4)
  1. REBIF [Suspect]
     Indication: MULTIPLE SCLEROSIS
     Dosage: 8.8, MCG, 3 IN 1 WEEKS, SUBCUTANEOUS
     Route: 058
     Dates: start: 20080510, end: 20080512
  2. UNSPECIFIED BLOOD PRESSURE MEDICATION (ALL OTHER THERAPEUTIC PRODUCTS) [Concomitant]
  3. ZANAFLEX [Concomitant]
  4. BACLOFEN [Concomitant]

REACTIONS (2)
  - ABASIA [None]
  - CENTRAL NERVOUS SYSTEM INFECTION [None]
